FAERS Safety Report 9671637 (Version 1)
Quarter: 2013Q4

REPORT INFORMATION
  Report Type: Spontaneous
  Country: US (occurrence: US)
  Receive Date: 20131106
  Receipt Date: 20131106
  Transmission Date: 20140711
  Serious: No
  Sender: FDA-Public Use
  Company Number: US-PFIZER INC-2013315975

PATIENT
  Sex: Female

DRUGS (1)
  1. QUILLIVANT XR [Suspect]
     Indication: ATTENTION DEFICIT/HYPERACTIVITY DISORDER
     Dosage: 20 MG, 1X/DAY
     Route: 048
     Dates: start: 201310, end: 20131031

REACTIONS (3)
  - Erythema [Recovered/Resolved]
  - Oral mucosal erythema [Recovered/Resolved]
  - Rash erythematous [Recovered/Resolved]
